FAERS Safety Report 23504996 (Version 1)
Quarter: 2024Q1

REPORT INFORMATION
  Report Type: Spontaneous
  Country: GB (occurrence: GB)
  Receive Date: 20240209
  Receipt Date: 20240209
  Transmission Date: 20240410
  Serious: No
  Sender: FDA-Public Use
  Company Number: None

PATIENT
  Age: 55 Year
  Sex: Female
  Weight: 121 kg

DRUGS (2)
  1. GABAPENTIN [Suspect]
     Active Substance: GABAPENTIN
     Indication: Fibromyalgia
     Dosage: 50 MILLIGRAM, TID (THREE TIMES A DAY), TABLET
     Route: 065
     Dates: start: 20230804
  2. CELECOXIB [Concomitant]
     Active Substance: CELECOXIB
     Indication: Fibromyalgia
     Dosage: UNK
     Route: 065
     Dates: start: 20180826

REACTIONS (1)
  - Migraine [Not Recovered/Not Resolved]

NARRATIVE: CASE EVENT DATE: 20230901
